FAERS Safety Report 4298872-7 (Version None)
Quarter: 2004Q1

REPORT INFORMATION
  Report Type: 
  Country: None (occurrence: None)
  Receive Date: 20040126
  Receipt Date: 20031107
  Transmission Date: 20041129
  Serious: No
  Sender: FDA-Public Use
  Company Number: USA031152031

PATIENT
  Age: 60 Year
  Sex: Female
  Weight: 59 kg

DRUGS (1)
  1. STRATTERA [Suspect]
     Dosage: 18 MG/DAY

REACTIONS (2)
  - FATIGUE [None]
  - PANIC DISORDER [None]
